FAERS Safety Report 7341164-X (Version None)
Quarter: 2011Q1

REPORT INFORMATION
  Report Type: 
  Country: None (occurrence: None)
  Receive Date: 20110309
  Receipt Date: 20101105
  Transmission Date: 20110831
  Serious: Yes (Other)
  Sender: FDA-Public Use
  Company Number: B0683616A

PATIENT
  Sex: Female

DRUGS (4)
  1. PAXIL [Suspect]
     Indication: PRODUCT USED FOR UNKNOWN INDICATION
     Route: 048
     Dates: start: 20100721, end: 20101115
  2. ZOLOFT [Concomitant]
     Route: 048
     Dates: start: 20101018
  3. LANDSEN [Concomitant]
     Indication: SOCIAL PHOBIA
     Dosage: 1MG PER DAY
     Route: 048
     Dates: start: 20100721, end: 20100830
  4. MEILAX [Concomitant]
     Indication: SOCIAL PHOBIA
     Dosage: 2MG PER DAY
     Route: 048
     Dates: start: 20100721, end: 20100803

REACTIONS (6)
  - WITHDRAWAL SYNDROME [None]
  - SOCIAL PHOBIA [None]
  - HAEMORRHAGIC DIATHESIS [None]
  - SOMNOLENCE [None]
  - HAEMORRHAGE [None]
  - NAUSEA [None]
